FAERS Safety Report 8842756 (Version 2)
Quarter: 2012Q4

REPORT INFORMATION
  Report Type: Report from Study
  Country: JP (occurrence: JP)
  Receive Date: 20121016
  Receipt Date: 20121219
  Transmission Date: 20130627
  Serious: Yes (Other)
  Sender: FDA-Public Use
  Company Number: JP-VERTEX PHARMACEUTICAL INC.-2012-022915

PATIENT
  Age: 64 Year
  Sex: Male

DRUGS (13)
  1. VX-950 (TELAPREVIR) [Suspect]
     Indication: CHRONIC HEPATITIS C
     Dosage: 2250 mg, qd
     Route: 048
     Dates: start: 20120404, end: 20120414
  2. PEGINTERFERON ALFA-2B [Suspect]
     Indication: CHRONIC HEPATITIS C
     Dosage: 1.5 ?g/kg, qw
     Route: 058
     Dates: start: 20120404, end: 20120911
  3. RIBAVIRIN [Concomitant]
     Dosage: 800 mg, qd
     Route: 048
     Dates: start: 20120404, end: 20120911
  4. LOXONIN [Concomitant]
     Dosage: 60 mg, qd
     Route: 048
     Dates: end: 20120417
  5. LOXONIN [Concomitant]
     Dosage: 100 mg, qd
     Route: 061
     Dates: start: 20120408, end: 20120409
  6. MUCOSTA [Concomitant]
     Dosage: 100 mg, qd
     Route: 048
  7. DOGMATYL [Concomitant]
     Dosage: 100 mg, qd
     Route: 048
     Dates: start: 20120403, end: 20120409
  8. HALCION [Concomitant]
     Dosage: 0.25 mg, qd
     Route: 048
     Dates: start: 20120408, end: 20120409
  9. NEXIUM                             /01479302/ [Concomitant]
     Dosage: 20 mg, qd
     Route: 048
     Dates: start: 20120415, end: 20120903
  10. OMEPRAL /00661201/ [Concomitant]
     Dosage: 20 mg, qd
     Route: 048
     Dates: start: 20120904
  11. LAXOBERON [Concomitant]
     Dosage: 1 UNK, UNK
     Route: 048
     Dates: start: 20120522
  12. DEPAS [Concomitant]
     Dosage: 1 mg, qd
     Route: 048
     Dates: start: 20120710
  13. GASMOTIN [Concomitant]
     Dosage: 15 mg, qd
     Route: 048

REACTIONS (1)
  - Retinal haemorrhage [Recovered/Resolved]
